FAERS Safety Report 25044658 (Version 1)
Quarter: 2025Q1

REPORT INFORMATION
  Report Type: Spontaneous
  Country: US (occurrence: US)
  Receive Date: 20250306
  Receipt Date: 20250306
  Transmission Date: 20250408
  Serious: No
  Sender: ALVOGEN
  Company Number: US-ALVOGEN-2024095250

PATIENT
  Sex: Male

DRUGS (2)
  1. BUPRENORPHINE AND NALOXONE [Suspect]
     Active Substance: BUPRENORPHINE HYDROCHLORIDE\NALOXONE HYDROCHLORIDE
     Indication: Drug abuse
     Route: 060
  2. BUPRENORPHINE AND NALOXONE [Suspect]
     Active Substance: BUPRENORPHINE HYDROCHLORIDE\NALOXONE HYDROCHLORIDE
     Indication: Drug abuse
     Route: 060

REACTIONS (10)
  - Malaise [Unknown]
  - Weight decreased [Unknown]
  - Bone pain [Unknown]
  - Dysstasia [Unknown]
  - Headache [Unknown]
  - Chills [Unknown]
  - Drug ineffective [Unknown]
  - Suspected product quality issue [Unknown]
  - Product taste abnormal [Unknown]
  - Off label use [Unknown]
